FAERS Safety Report 13211600 (Version 1)
Quarter: 2017Q1

REPORT INFORMATION
  Report Type: Spontaneous
  Country: US (occurrence: US)
  Receive Date: 20170209
  Receipt Date: 20170209
  Transmission Date: 20170428
  Serious: No
  Sender: FDA-Public Use
  Company Number: US-ALLERGAN-1656550US

PATIENT
  Age: 54 Year
  Sex: Male

DRUGS (1)
  1. BOTOX [Suspect]
     Active Substance: ONABOTULINUMTOXINA
     Indication: MIGRAINE
     Dosage: 200 UNITS, SINGLE
     Route: 030
     Dates: start: 20160511, end: 20160511

REACTIONS (6)
  - Pallor [Recovered/Resolved]
  - Off label use [Unknown]
  - Dizziness [Recovered/Resolved]
  - Aphasia [Recovered/Resolved]
  - Dysphonia [Recovered/Resolved]
  - Unresponsive to stimuli [Recovered/Resolved]

NARRATIVE: CASE EVENT DATE: 20160511
